FAERS Safety Report 6473272-X (Version None)
Quarter: 2009Q4

REPORT INFORMATION
  Report Type: 
  Country: None (occurrence: None)
  Receive Date: 20091204
  Receipt Date: 20080929
  Transmission Date: 20100525
  Serious: Yes (Death, Hospitalization)
  Sender: FDA-Public Use
  Company Number: US-ELI_LILLY_AND_COMPANY-US200809002878

PATIENT
  Age: 50 Year
  Sex: Male

DRUGS (3)
  1. ZYPREXA [Suspect]
     Indication: SCHIZOPHRENIA
     Dosage: 30 MG, DAILY (1/D)
     Route: 048
     Dates: end: 20080601
  2. ZYPREXA [Suspect]
     Dosage: 35 MG, DAILY (1/D)
     Route: 048
     Dates: start: 20080601
  3. HALDOL [Concomitant]
     Dosage: 150 MG, MONTHLY (1/M)

REACTIONS (5)
  - DRUG INEFFECTIVE [None]
  - DRUG LEVEL INCREASED [None]
  - INTRACARDIAC THROMBUS [None]
  - OVERDOSE [None]
  - SCHIZOPHRENIA [None]
